FAERS Safety Report 5466936-8 (Version None)
Quarter: 2007Q3

REPORT INFORMATION
  Report Type: 
  Country: None (occurrence: None)
  Receive Date: 20070921
  Receipt Date: 20070921
  Transmission Date: 20080115
  Serious: Yes (Death)
  Sender: FDA-Public Use
  Company Number: None

PATIENT
  Age: 33 Year
  Sex: Female
  Weight: 90.7194 kg

DRUGS (1)
  1. ACTIQ SUCKERS 1600 MG [Suspect]
     Indication: PAIN
     Dosage: AS OFTEN AS SHE WANTED AT LEAST 10 A DAY
     Dates: start: 20030101, end: 20070111

REACTIONS (4)
  - ACTIVITIES OF DAILY LIVING IMPAIRED [None]
  - CARDIAC DISORDER [None]
  - DRUG DEPENDENCE [None]
  - TOOTH LOSS [None]
